FAERS Safety Report 4583723-3 (Version None)
Quarter: 2005Q1

REPORT INFORMATION
  Report Type: 
  Country: None (occurrence: None)
  Receive Date: 20050211
  Receipt Date: 20050131
  Transmission Date: 20050727
  Serious: Yes (Death)
  Sender: FDA-Public Use
  Company Number: 9039997-2005-00019

PATIENT

DRUGS (1)
  1. 5-AMINOLEVULINIC ACID 60 MG/KG MEDAC GERMANY [Suspect]
     Indication: BILE DUCT CANCER
     Dosage: 60 MG/KG, ONCE, ORAL
     Route: 048

REACTIONS (3)
  - BILE DUCT CANCER [None]
  - DRUG INEFFECTIVE [None]
  - MALIGNANT NEOPLASM PROGRESSION [None]
